FAERS Safety Report 8232354-2 (Version None)
Quarter: 2012Q1

REPORT INFORMATION
  Report Type: 
  Country: None (occurrence: None)
  Receive Date: 20120323
  Receipt Date: 20120315
  Transmission Date: 20120608
  Serious: Yes (Death)
  Sender: FDA-Public Use
  Company Number: US-GLAXOSMITHKLINE-A0970006A

PATIENT
  Age: 69 Year
  Sex: Female
  Weight: 108 kg

DRUGS (3)
  1. FLOLAN [Suspect]
     Indication: PULMONARY ARTERIAL HYPERTENSION
     Dosage: 6NGKM UNKNOWN
     Route: 042
     Dates: start: 20120301
  2. REVATIO [Concomitant]
     Dosage: 20MG THREE TIMES PER DAY
     Route: 048
  3. ASPIRIN [Concomitant]

REACTIONS (6)
  - RENAL FAILURE [None]
  - DEATH [None]
  - FLUID OVERLOAD [None]
  - DYSPNOEA [None]
  - HYPOTENSION [None]
  - URINE OUTPUT DECREASED [None]
